FAERS Safety Report 7150865-8 (Version None)
Quarter: 2010Q4

REPORT INFORMATION
  Report Type: 
  Country: None (occurrence: None)
  Receive Date: 20101210
  Receipt Date: 20101027
  Transmission Date: 20110411
  Serious: Yes (Other)
  Sender: FDA-Public Use
  Company Number: PHHY2010JP48911

PATIENT
  Sex: Female
  Weight: 8 kg

DRUGS (7)
  1. SANDOSTATIN [Suspect]
     Indication: PROTEIN-LOSING GASTROENTEROPATHY
     Dosage: UNK
     Route: 041
     Dates: start: 20100531, end: 20100930
  2. DRUG THERAPY NOS [Concomitant]
  3. INTAL [Concomitant]
     Dosage: 1.5 G, UNK
     Route: 048
     Dates: start: 20100419
  4. TRANEXAMIC ACID [Concomitant]
     Dosage: 3 ML, UNK
     Route: 048
     Dates: start: 20100419, end: 20100723
  5. CINAL [Concomitant]
     Dosage: 1 G, UNK
     Route: 048
     Dates: start: 20100607, end: 20100723
  6. JUVELA [Concomitant]
     Dosage: 20 MG, UNK
     Route: 048
     Dates: start: 20100607, end: 20100723
  7. INCREMIN [Concomitant]
     Dosage: 4 ML, UNK
     Route: 048

REACTIONS (2)
  - BLOOD CREATINE PHOSPHOKINASE INCREASED [None]
  - BLOOD CREATINE PHOSPHOKINASE MB INCREASED [None]
